FAERS Safety Report 5362324-3 (Version None)
Quarter: 2007Q2

REPORT INFORMATION
  Report Type: 
  Country: None (occurrence: None)
  Receive Date: 20070619
  Receipt Date: 20070615
  Transmission Date: 20071010
  Serious: Yes (Life-Threatening)
  Sender: FDA-Public Use
  Company Number: B0475587A

PATIENT
  Age: 35 Year
  Sex: Female
  Weight: 116 kg

DRUGS (6)
  1. CLAMOXYL IV [Suspect]
     Indication: PYREXIA
     Dosage: 2G PER DAY
     Route: 042
     Dates: start: 20070426, end: 20070426
  2. PERFALGAN [Suspect]
     Indication: PREMATURE RUPTURE OF MEMBRANES
     Dosage: 1G PER DAY
     Route: 042
     Dates: start: 20070426, end: 20070426
  3. SPASFON [Concomitant]
     Route: 065
     Dates: start: 20070426
  4. SYNTOCINON [Concomitant]
     Route: 042
     Dates: start: 20070426, end: 20070426
  5. XYLOCAINE [Concomitant]
     Route: 042
     Dates: start: 20070426, end: 20070426
  6. SCOPOLAMINE [Concomitant]
     Route: 058
     Dates: start: 20070426

REACTIONS (7)
  - ANAPHYLACTIC SHOCK [None]
  - BLOOD PRESSURE DECREASED [None]
  - CAESAREAN SECTION [None]
  - DRUG EXPOSURE DURING PREGNANCY [None]
  - GENERALISED ERYTHEMA [None]
  - MALAISE [None]
  - PRURITUS [None]
